FAERS Safety Report 10496671 (Version 2)
Quarter: 2014Q4

REPORT INFORMATION
  Report Type: Report from Study
  Country: CA (occurrence: CA)
  Receive Date: 20141006
  Receipt Date: 20141006
  Transmission Date: 20150528
  Serious: Yes (Other)
  Sender: FDA-Public Use
  Company Number: CA-ROCHE-1314163

PATIENT
  Sex: Male
  Weight: 103.6 kg

DRUGS (8)
  1. RITUXAN [Suspect]
     Active Substance: RITUXIMAB
     Indication: RHEUMATOID ARTHRITIS
     Dosage: FREQUENCY: DAY 1 AND DAY 15?LAST DOSE ON: 27/AUG/2014
     Route: 042
     Dates: start: 20140813
  2. ZOPLICONE (UNK INGREDIENTS) [Concomitant]
  3. COVERSYL [Concomitant]
     Active Substance: PERINDOPRIL
  4. ACETAMINOPHEN. [Concomitant]
     Active Substance: ACETAMINOPHEN
     Dosage: RITUXAN PRE-MEDICATION
     Route: 048
     Dates: start: 20140813
  5. DIPHENHYDRAMINE HCL [Concomitant]
     Active Substance: DIPHENHYDRAMINE HYDROCHLORIDE
     Dosage: RITUXAN PRE-MEDICATION
     Route: 048
     Dates: start: 20140813
  6. METHYLPREDNISOLONE. [Concomitant]
     Active Substance: METHYLPREDNISOLONE
     Dosage: RITUXAN PRE-MEDICATION
     Route: 042
     Dates: start: 20140813
  7. ACTEMRA [Suspect]
     Active Substance: TOCILIZUMAB
     Indication: RHEUMATOID ARTHRITIS
     Dosage: LAST DOSE TAKEN: 23/APR/2014
     Route: 042
     Dates: start: 20131017, end: 20140423
  8. VITAMIN C [Concomitant]
     Active Substance: ASCORBIC ACID

REACTIONS (7)
  - Drug ineffective [Unknown]
  - Joint injury [Unknown]
  - Urinary tract infection [Unknown]
  - Malaise [Unknown]
  - Contusion [Unknown]
  - Lower respiratory tract infection [Recovered/Resolved]
  - Prostatic specific antigen increased [Not Recovered/Not Resolved]

NARRATIVE: CASE EVENT DATE: 2014
